FAERS Safety Report 9436551 (Version 1)
Quarter: 2013Q3

REPORT INFORMATION
  Report Type: Spontaneous
  Country: US (occurrence: US)
  Receive Date: 20130802
  Receipt Date: 20130802
  Transmission Date: 20140515
  Serious: No
  Sender: FDA-Public Use
  Company Number: US-OPTIMER-20130124

PATIENT
  Age: 66 Year
  Sex: Female
  Weight: 63.49 kg

DRUGS (20)
  1. DIFICID [Suspect]
     Indication: CLOSTRIDIAL INFECTION
     Dosage: 200 MG, BID
     Route: 048
     Dates: start: 20130406
  2. VANCOMYCIN [Suspect]
     Indication: CLOSTRIDIAL INFECTION
     Dosage: 250 MG, EVERY 6 HOURS
     Route: 048
     Dates: start: 20130330, end: 20130408
  3. ZYVOX [Concomitant]
     Indication: INFECTION
     Dosage: 600 MG, BID
     Route: 048
     Dates: start: 20130404, end: 20130410
  4. PROTONIX [Concomitant]
     Indication: GASTROOESOPHAGEAL REFLUX DISEASE
     Dosage: 40 MG, QD
     Route: 048
  5. QVAR [Concomitant]
     Indication: BRONCHITIS CHRONIC
     Dosage: 80 ?G, QD
     Route: 055
  6. SPIRIVA [Concomitant]
     Indication: BRONCHITIS CHRONIC
     Dosage: UNK, QD
     Route: 055
  7. VITAMIN B12 [Concomitant]
     Indication: VITAMIN SUPPLEMENTATION
     Dosage: 500 ?G, QD
     Route: 048
  8. CELEXA [Concomitant]
     Indication: DEPRESSION
     Dosage: 20 MG, QD
     Route: 048
  9. LISINOPRIL [Concomitant]
     Indication: HYPERTENSION
     Dosage: 10 MG, QD
     Route: 048
  10. TRAZODONE [Concomitant]
     Indication: INSOMNIA
     Dosage: 50 MG, HS
     Route: 048
  11. IRON [Concomitant]
     Indication: ANAEMIA
     Dosage: 325 MG, UNK
     Route: 048
  12. ZOFRAN [Concomitant]
     Indication: NAUSEA
     Dosage: 4 MG, EVERY 6 HOURS
     Route: 048
  13. PLAVIX [Concomitant]
     Indication: ARTERIOSCLEROSIS CORONARY ARTERY
     Dosage: 75 MG, QD
     Route: 048
  14. OSCAL D3 [Concomitant]
     Indication: SUPPLEMENTATION THERAPY
     Dosage: 500/200 MG, BID
     Route: 048
  15. SENOKOT [Concomitant]
     Dosage: 8.6 MG, UNK
     Route: 048
  16. MAGNESIUM OXIDE [Concomitant]
     Dosage: 400 MG, UNK
     Route: 048
  17. ATIVAN [Concomitant]
     Indication: ANXIETY
     Dosage: 0.5 MG, UNK
     Route: 048
  18. ULTRAM 5 [Concomitant]
     Dosage: 50 MG, UNK
     Route: 048
  19. XOPENEX [Concomitant]
     Indication: BRONCHITIS CHRONIC
     Dosage: UNK
     Route: 055
  20. HUMULIN [Concomitant]
     Indication: DIABETES MELLITUS
     Dosage: UNK
     Route: 058

REACTIONS (1)
  - Nausea [Recovered/Resolved]
